FAERS Safety Report 5409954-8 (Version None)
Quarter: 2007Q3

REPORT INFORMATION
  Report Type: 
  Country: None (occurrence: None)
  Receive Date: 20070809
  Receipt Date: 20070718
  Transmission Date: 20080115
  Serious: Yes (Other)
  Sender: FDA-Public Use
  Company Number: NO-PFIZER INC-2007058724

PATIENT
  Sex: Female

DRUGS (2)
  1. LYRICA [Suspect]
     Indication: PAIN
     Route: 048
  2. REMERON [Suspect]
     Indication: DEPRESSION
     Route: 048
     Dates: start: 20070301

REACTIONS (4)
  - BLISTER [None]
  - PAIN IN EXTREMITY [None]
  - PERONEAL NERVE PALSY [None]
  - SKIN ULCER [None]
